FAERS Safety Report 5100096-8 (Version None)
Quarter: 2006Q3

REPORT INFORMATION
  Report Type: 
  Country: None (occurrence: None)
  Receive Date: 20060908
  Receipt Date: 20060110
  Transmission Date: 20061208
  Serious: Yes (Hospitalization)
  Sender: FDA-Public Use
  Company Number: JP-BOEHRINGER INGELHEIM PHARMACEUTICALS, INC.-2006-BP-00290NB

PATIENT
  Sex: Male
  Weight: 47 kg

DRUGS (10)
  1. BI-SIFROL TABLETS [Suspect]
     Indication: PARKINSON'S DISEASE
     Route: 048
     Dates: start: 20050726, end: 20050828
  2. DOPS [Suspect]
     Indication: FREEZING PHENOMENON
     Route: 048
     Dates: start: 20050730, end: 20050823
  3. MENESIT [Suspect]
     Indication: PARKINSON'S DISEASE
     Route: 048
     Dates: start: 20050718
  4. PAXIL [Suspect]
     Indication: DEPRESSION
     Route: 048
  5. PAXIL [Concomitant]
     Route: 048
  6. MARZULENE-S (SODIUM AZULENE SULFONATE L-GLUTAMINE) [Concomitant]
     Indication: STOMACH DISCOMFORT
     Route: 048
  7. RENIVACE [Concomitant]
     Indication: HYPERTENSION
     Route: 048
  8. MAGNESIUM OXIDE [Concomitant]
     Indication: CONSTIPATION
     Route: 048
     Dates: start: 20050726
  9. DOPS [Concomitant]
     Route: 048
     Dates: start: 20050730, end: 20050823
  10. MENESIT [Concomitant]
     Route: 048
     Dates: start: 20050718

REACTIONS (5)
  - AGITATION [None]
  - CONFUSIONAL STATE [None]
  - DELIRIUM [None]
  - DELUSION [None]
  - HALLUCINATION [None]
